FAERS Safety Report 5885287-0 (Version None)
Quarter: 2008Q3

REPORT INFORMATION
  Report Type: 
  Country: None (occurrence: None)
  Receive Date: 20080916
  Receipt Date: 20080904
  Transmission Date: 20090109
  Serious: Yes (Other)
  Sender: FDA-Public Use
  Company Number: GB-PFIZER INC-2008069489

PATIENT
  Sex: Female

DRUGS (1)
  1. CHANTIX [Suspect]
     Indication: EX-TOBACCO USER
     Route: 048
     Dates: start: 20080712, end: 20080724

REACTIONS (4)
  - FEELING ABNORMAL [None]
  - JOINT STIFFNESS [None]
  - MUSCLE TIGHTNESS [None]
  - NECK PAIN [None]
